FAERS Safety Report 6870168-6 (Version None)
Quarter: 2010Q3

REPORT INFORMATION
  Report Type: 
  Country: None (occurrence: None)
  Receive Date: 20100721
  Receipt Date: 20100715
  Transmission Date: 20110219
  Serious: Yes (Hospitalization, Other)
  Sender: FDA-Public Use
  Company Number: RB-10899-2010

PATIENT
  Age: 34 Year
  Sex: Female

DRUGS (3)
  1. SUBOXONE [Suspect]
     Indication: DRUG DEPENDENCE
     Dosage: (8 MG QID SUBLINGUAL)
     Route: 060
     Dates: start: 20100603, end: 20100608
  2. SUBUTEX [Suspect]
     Indication: PRODUCT USED FOR UNKNOWN INDICATION
  3. XANAX [Suspect]
     Indication: ANXIETY
     Dates: end: 20100608

REACTIONS (25)
  - ANXIETY [None]
  - BLOOD PRESSURE FLUCTUATION [None]
  - CHILLS [None]
  - CONSTIPATION [None]
  - CONVULSION [None]
  - DIARRHOEA [None]
  - DRY MOUTH [None]
  - FEELING ABNORMAL [None]
  - HALLUCINATION [None]
  - HEAD INJURY [None]
  - HEADACHE [None]
  - HYPERHIDROSIS [None]
  - LOSS OF CONSCIOUSNESS [None]
  - MYOCARDIAL INFARCTION [None]
  - NASOPHARYNGITIS [None]
  - NAUSEA [None]
  - PALPITATIONS [None]
  - PARANOIA [None]
  - PHARYNGEAL HAEMORRHAGE [None]
  - PYREXIA [None]
  - SLEEP DISORDER [None]
  - SNEEZING [None]
  - SPEECH DISORDER [None]
  - TACHYCARDIA [None]
  - THINKING ABNORMAL [None]
